FAERS Safety Report 24035961 (Version 1)
Quarter: 2024Q3

REPORT INFORMATION
  Report Type: Spontaneous
  Country: FR (occurrence: FR)
  Receive Date: 20240701
  Receipt Date: 20240701
  Transmission Date: 20241017
  Serious: Yes (Hospitalization)
  Sender: VERTEX
  Company Number: None

PATIENT
  Age: 20 Year
  Sex: Male
  Weight: 47 kg

DRUGS (1)
  1. ELEXACAFTOR\IVACAFTOR\TEZACAFTOR [Suspect]
     Active Substance: ELEXACAFTOR\IVACAFTOR\TEZACAFTOR
     Indication: Cystic fibrosis
     Dosage: IVACAFTOR/TEZACAFTOR/ELEXACAFTOR,2 DOSAGE FORM
     Route: 048
     Dates: start: 20210701

REACTIONS (1)
  - Abdominal adhesions [Not Recovered/Not Resolved]
